FAERS Safety Report 5078804-4 (Version None)
Quarter: 2006Q3

REPORT INFORMATION
  Report Type: 
  Country: None (occurrence: None)
  Receive Date: 20060814
  Receipt Date: 20060530
  Transmission Date: 20061208
  Serious: Yes (Other)
  Sender: FDA-Public Use
  Company Number: PHNU2006DE02122

PATIENT
  Age: 71 Year
  Sex: Male

DRUGS (5)
  1. GLEEVEC [Suspect]
     Indication: GASTROINTESTINAL STROMAL TUMOUR
     Dosage: 400 MG, QD
     Route: 048
     Dates: start: 20051101
  2. METOPROLOL TARTRATE [Concomitant]
     Dosage: 95 MG, BID
     Route: 048
  3. DOXEPIN [Concomitant]
     Dosage: 25 MG, BID
     Route: 048
  4. HYDROCHLOROTHIAZIDE [Concomitant]
     Dosage: 12.5 MG/DAY
     Route: 048
  5. LEVOTHYROXINE SODIUM [Concomitant]
     Dosage: 150 A?G/DAY
     Route: 048

REACTIONS (3)
  - PANCREATITIS [None]
  - THYROID DISORDER [None]
  - THYROID OPERATION [None]
